FAERS Safety Report 11058010 (Version 1)
Quarter: 2015Q2

REPORT INFORMATION
  Report Type: Spontaneous
  Country: US (occurrence: US)
  Receive Date: 20150423
  Receipt Date: 20150423
  Transmission Date: 20150821
  Serious: Yes (Hospitalization, Other)
  Sender: FDA-Public Use
  Company Number: US-AMGEN-USASP2015038026

PATIENT
  Age: 20 Year
  Sex: Female

DRUGS (1)
  1. ENBREL [Suspect]
     Active Substance: ETANERCEPT
     Indication: JUVENILE IDIOPATHIC ARTHRITIS
     Dosage: UNK
     Route: 065

REACTIONS (24)
  - Hypoxia [Recovering/Resolving]
  - Pyrexia [Recovering/Resolving]
  - Vomiting [Recovering/Resolving]
  - Exposure during pregnancy [Unknown]
  - Pulmonary oedema [Recovering/Resolving]
  - Troponin I increased [Recovering/Resolving]
  - Haemoglobin abnormal [Recovering/Resolving]
  - Dyspnoea [Recovering/Resolving]
  - Inflammatory marker increased [Recovering/Resolving]
  - Ejection fraction abnormal [Recovering/Resolving]
  - Pulmonary arterial pressure abnormal [Recovering/Resolving]
  - Tachycardia [Recovering/Resolving]
  - Cardiac index abnormal [Recovering/Resolving]
  - Electrocardiogram T wave inversion [Recovering/Resolving]
  - Diarrhoea [Recovering/Resolving]
  - Hypotension [Recovering/Resolving]
  - Electrocardiogram ST segment depression [Recovering/Resolving]
  - Ventricular dysfunction [Recovered/Resolved]
  - Cardiac output decreased [Recovering/Resolving]
  - Brain natriuretic peptide abnormal [Recovering/Resolving]
  - Pregnancy [Unknown]
  - Ventricular hypokinesia [Recovering/Resolving]
  - Oropharyngeal pain [Recovering/Resolving]
  - Pain [Recovering/Resolving]
